FAERS Safety Report 21111053 (Version 1)
Quarter: 2022Q3

REPORT INFORMATION
  Report Type: Spontaneous
  Country: US (occurrence: None)
  Receive Date: 20220720
  Receipt Date: 20220720
  Transmission Date: 20221026
  Serious: Yes (unspecified)
  Sender: FDA-Public Use
  Company Number: None

PATIENT
  Age: 14 Year
  Sex: Female
  Weight: 38.5 kg

DRUGS (22)
  1. ABATACEPT [Suspect]
     Active Substance: ABATACEPT
     Indication: Prophylaxis against graft versus host disease
     Dosage: OTHER FREQUENCY : 8 DOSES;?
     Route: 042
     Dates: start: 20220622
  2. ACYCLOVIR [Concomitant]
     Active Substance: ACYCLOVIR
     Dates: start: 20220622
  3. ALBUTEROL [Concomitant]
     Active Substance: ALBUTEROL
     Dates: start: 20220713
  4. ATOVAQUONE [Concomitant]
     Active Substance: ATOVAQUONE
     Dates: start: 20220616
  5. DOXYCYCLINE [Concomitant]
     Active Substance: DOXYCYCLINE
     Dates: start: 20220716
  6. INSULIN LISPRO [Concomitant]
     Active Substance: INSULIN LISPRO
     Dates: start: 20220712
  7. INSULIN GLARGINE [Concomitant]
     Active Substance: INSULIN GLARGINE
     Dates: start: 20220713
  8. MEROPENEM [Concomitant]
     Active Substance: MEROPENEM
     Dates: start: 20220704
  9. MELPHALAN [Concomitant]
     Active Substance: MELPHALAN
     Dates: start: 20220621, end: 20220621
  10. MYCOPHENOLIC ACID [Concomitant]
     Active Substance: MYCOPHENOLIC ACID
     Dates: start: 20220621
  11. PANTOPRAZOLE [Concomitant]
     Active Substance: PANTOPRAZOLE
     Dates: start: 20220617
  12. TACROLIMUS [Concomitant]
     Active Substance: TACROLIMUS
     Dates: start: 20220621
  13. URSODIOL [Concomitant]
     Active Substance: URSODIOL
     Dates: start: 20220616
  14. VALGANCICLOVIR [Concomitant]
     Active Substance: VALGANCICLOVIR
     Dates: start: 20220616
  15. VORICONAZOLE [Concomitant]
     Active Substance: VORICONAZOLE
     Dates: start: 20220624
  16. AMICAR [Concomitant]
     Active Substance: AMINOCAPROIC ACID
     Dates: start: 20220708, end: 20220708
  17. DIPHENHYDRAMINE [Concomitant]
     Active Substance: DIPHENHYDRAMINE
     Dates: start: 20220622
  18. DIPHENHYDRAMINE HYDROCHLORIDE\LIDOCAINE HYDROCHLORIDE\NYSTATIN [Concomitant]
     Active Substance: DIPHENHYDRAMINE HYDROCHLORIDE\LIDOCAINE HYDROCHLORIDE\NYSTATIN
     Dates: start: 20220705, end: 20220709
  19. FILGRASTIM [Concomitant]
     Active Substance: FILGRASTIM
     Dates: start: 20220630, end: 20220717
  20. FLUDARABINE [Concomitant]
     Active Substance: FLUDARABINE PHOSPHATE
     Dates: start: 20220617, end: 20220621
  21. FUROSEMIDE [Concomitant]
     Active Substance: FUROSEMIDE
     Dates: start: 20220623
  22. PRIVIGEN [Concomitant]
     Active Substance: HUMAN IMMUNOGLOBULIN G
     Dates: start: 20220711

REACTIONS (7)
  - Mucosal inflammation [None]
  - Epistaxis [None]
  - Respiratory failure [None]
  - Hypervolaemia [None]
  - Hypoxia [None]
  - Pleural effusion [None]
  - Idiopathic pneumonia syndrome [None]

NARRATIVE: CASE EVENT DATE: 20220716
